FAERS Safety Report 6979714-5 (Version None)
Quarter: 2010Q3

REPORT INFORMATION
  Report Type: 
  Country: None (occurrence: None)
  Receive Date: 20100913
  Receipt Date: 20100903
  Transmission Date: 20110219
  Serious: Yes (Other)
  Sender: FDA-Public Use
  Company Number: US-ABBOTT-10P-163-0659600-00

PATIENT
  Sex: Female
  Weight: 62.198 kg

DRUGS (2)
  1. HUMIRA [Suspect]
     Indication: CROHN'S DISEASE
     Route: 058
     Dates: start: 20090701, end: 20090901
  2. HUMIRA [Suspect]
     Route: 058
     Dates: start: 20090101, end: 20090701

REACTIONS (3)
  - ABDOMINAL PAIN UPPER [None]
  - ILEAL STENOSIS [None]
  - SMALL INTESTINAL OBSTRUCTION [None]
